FAERS Safety Report 24263669 (Version 1)
Quarter: 2024Q3

REPORT INFORMATION
  Report Type: Spontaneous
  Country: US (occurrence: US)
  Receive Date: 20240829
  Receipt Date: 20240829
  Transmission Date: 20241017
  Serious: No
  Sender: MILLICENT HOLDINGS
  Company Number: US-Millicent Holdings Ltd.-MILL20241116

PATIENT
  Age: 56 Year
  Sex: Female

DRUGS (3)
  1. INTRAROSA [Suspect]
     Active Substance: PRASTERONE
     Indication: Vulvovaginal dryness
     Dosage: 6.5 MG
     Route: 067
     Dates: start: 2020
  2. INTRAROSA [Suspect]
     Active Substance: PRASTERONE
     Dosage: 6.5 MG
     Route: 067
     Dates: start: 202407, end: 20240821
  3. INTRAROSA [Suspect]
     Active Substance: PRASTERONE
     Dosage: 6.5 MG
     Route: 067
     Dates: start: 20240822

REACTIONS (4)
  - Product dose omission issue [Not Recovered/Not Resolved]
  - Off label use [Unknown]
  - Wrong technique in product usage process [Recovered/Resolved]
  - Product packaging issue [Not Recovered/Not Resolved]

NARRATIVE: CASE EVENT DATE: 20200101
